FAERS Safety Report 9408049 (Version 1)
Quarter: 2013Q3

REPORT INFORMATION
  Report Type: Spontaneous
  Country: US (occurrence: US)
  Receive Date: 20130718
  Receipt Date: 20130718
  Transmission Date: 20140515
  Serious: Yes (Other)
  Sender: FDA-Public Use
  Company Number: US201205009547

PATIENT
  Age: 71 Year
  Sex: Male
  Weight: 81.63 kg

DRUGS (20)
  1. BYDUREON [Suspect]
     Indication: TYPE 2 DIABETES MELLITUS
     Route: 058
     Dates: start: 20120515, end: 20120603
  2. BYETTA PEN DISPOSABLE [Suspect]
     Indication: TYPE 2 DIABETES MELLITUS
     Dosage: LOT#A942628A,JAN14 ,10MCG,BID: UNK-14MAY12?11JUN12-UNK
     Route: 058
     Dates: start: 2005
  3. EXENATIDE 10MCG PEN, DISPOSABLE DEVICE [Concomitant]
  4. EXENATIDE 10MCG PEN, DISPOSABLE DEVICE [Concomitant]
  5. GLUCOPHAGE [Suspect]
     Indication: TYPE 2 DIABETES MELLITUS
     Dosage: 1000MG
     Route: 048
     Dates: end: 20120607
  6. GLIPIZIDE [Suspect]
     Indication: TYPE 2 DIABETES MELLITUS
     Dosage: 5MG IN MRNG
     Route: 048
  7. LIPITOR [Concomitant]
     Route: 048
  8. TRILIPIX [Concomitant]
     Route: 048
  9. DIOVAN [Concomitant]
     Dosage: 160MG:UNK-16JUN12?80MG:17JUN12-
     Route: 048
     Dates: end: 20120616
  10. FLOMAX [Concomitant]
     Route: 048
  11. ZETIA [Concomitant]
     Route: 048
  12. CARVEDILOL [Concomitant]
     Route: 048
     Dates: start: 201206
  13. FOLIC ACID [Concomitant]
     Route: 048
  14. PREVACID [Concomitant]
     Route: 048
  15. ASPIRIN [Concomitant]
     Route: 048
  16. METOPROLOL [Concomitant]
     Indication: BLOOD PRESSURE
     Route: 048
     Dates: end: 20120616
  17. VITAMIN B6 [Concomitant]
     Route: 048
  18. VITAMIN B12 [Concomitant]
     Route: 048
  19. MULTIVITAMIN [Concomitant]
     Route: 048
  20. GLUCOSE [Concomitant]
     Indication: BLOOD GLUCOSE DECREASED
     Dates: start: 20120611

REACTIONS (12)
  - Cardiac flutter [Not Recovered/Not Resolved]
  - Blood glucose decreased [Not Recovered/Not Resolved]
  - Blood creatinine increased [Recovering/Resolving]
  - Influenza [Not Recovered/Not Resolved]
  - Blood glucose increased [Not Recovered/Not Resolved]
  - Fatigue [Not Recovered/Not Resolved]
  - Nausea [Not Recovered/Not Resolved]
  - Dizziness [Not Recovered/Not Resolved]
  - Injection site haemorrhage [Recovered/Resolved]
  - Injection site nodule [Not Recovered/Not Resolved]
  - Intentional drug misuse [Unknown]
  - Weight decreased [Unknown]
